FAERS Safety Report 17274052 (Version 1)
Quarter: 2020Q1

REPORT INFORMATION
  Report Type: Spontaneous
  Country: US (occurrence: US)
  Receive Date: 20200115
  Receipt Date: 20200115
  Transmission Date: 20200409
  Serious: Yes (Death, Life-Threatening, Hospitalization, Other)
  Sender: FDA-Public Use
  Company Number: US-AMGEN-USASP2020005643

PATIENT
  Age: 73 Year
  Sex: Male

DRUGS (1)
  1. CARFILZOMIB [Suspect]
     Active Substance: CARFILZOMIB
     Indication: PLASMA CELL MYELOMA
     Dosage: 122.08 MILLIGRAM ON TWO CONSECUTIVE DAYS
     Route: 065

REACTIONS (5)
  - Myocardial ischaemia [Fatal]
  - Cardiac failure congestive [Fatal]
  - Pulmonary oedema [Fatal]
  - Tumour lysis syndrome [Fatal]
  - Acute kidney injury [Fatal]
